FAERS Safety Report 8889547 (Version 1)
Quarter: 2012Q4

REPORT INFORMATION
  Report Type: Spontaneous
  Country: US (occurrence: None)
  Receive Date: 20121105
  Receipt Date: 20121105
  Transmission Date: 20130627
  Serious: Yes (Hospitalization)
  Sender: FDA-Public Use
  Company Number: None

PATIENT
  Age: 86 Year
  Sex: Male
  Weight: 83.92 kg

DRUGS (1)
  1. THIORIDAZINE 25MG [Suspect]
     Indication: MOOD DISORDER NOS
     Dosage: 25 mg 1 at Bedtime Oral
     Route: 048
     Dates: start: 20120606

REACTIONS (1)
  - Anuria [None]
